FAERS Safety Report 24995910 (Version 2)
Quarter: 2025Q1

REPORT INFORMATION
  Report Type: Spontaneous
  Country: IT (occurrence: IT)
  Receive Date: 20250221
  Receipt Date: 20250228
  Transmission Date: 20250408
  Serious: Yes (Life-Threatening, Other)
  Sender: ALEXION PHARMACEUTICALS
  Company Number: IT-ASTRAZENECA-202502GLO017293IT

PATIENT
  Age: 19 Year

DRUGS (2)
  1. QUETIAPINE [Suspect]
     Active Substance: QUETIAPINE
     Dosage: 600 MILLIGRAM, QD
  2. IBUPROFEN [Suspect]
     Active Substance: IBUPROFEN

REACTIONS (3)
  - Drug abuse [Recovered/Resolved]
  - Intentional self-injury [Recovered/Resolved]
  - Somnolence [Recovered/Resolved]
